FAERS Safety Report 17089138 (Version 2)
Quarter: 2020Q2

REPORT INFORMATION
  Report Type: Spontaneous
  Country: GB (occurrence: GB)
  Receive Date: 20191128
  Receipt Date: 20200616
  Transmission Date: 20200713
  Serious: Yes (Hospitalization, Other)
  Sender: FDA-Public Use
  Company Number: GB-RECORDATI RARE DISEASES INC.-GB-R13005-19-00333

PATIENT
  Age: 4 Year
  Sex: Male

DRUGS (4)
  1. VINCRISTINE [Suspect]
     Active Substance: VINCRISTINE
     Indication: EMBRYONAL RHABDOMYOSARCOMA
     Route: 065
  2. IFOSFAMINE [Suspect]
     Active Substance: IFOSFAMIDE
     Route: 065
  3. DACTINOMYCIN [Suspect]
     Active Substance: DACTINOMYCIN
     Indication: EMBRYONAL RHABDOMYOSARCOMA
     Route: 065
  4. IFOSFAMINE [Suspect]
     Active Substance: IFOSFAMIDE
     Indication: EMBRYONAL RHABDOMYOSARCOMA
     Route: 065

REACTIONS (2)
  - Facial paralysis [Recovered/Resolved]
  - Neutropenic sepsis [Unknown]
